FAERS Safety Report 16033535 (Version 1)
Quarter: 2019Q1

REPORT INFORMATION
  Report Type: Spontaneous
  Country: US (occurrence: US)
  Receive Date: 20190305
  Receipt Date: 20190305
  Transmission Date: 20190418
  Serious: No
  Sender: FDA-Public Use
  Company Number: US-IMPAX LABORATORIES, LLC-2018-IPXL-02391

PATIENT
  Sex: Female
  Weight: 44 kg

DRUGS (5)
  1. CARBIDOPA-LEVODOPA ER [Suspect]
     Active Substance: CARBIDOPA\LEVODOPA
     Indication: PARKINSON^S DISEASE
     Dosage: UNK (A HALF TABLET OR SOMETHING)
     Route: 065
     Dates: start: 2018, end: 2018
  2. RYTARY [Suspect]
     Active Substance: CARBIDOPA\LEVODOPA
     Indication: PARKINSON^S DISEASE
     Dosage: 48.75/195 MG, 3CAPS,6 TIMES DAILY(BEFORE BREAKFAST, 10:30 AM, 01:30 PM, 04:30 PM, 07:30 PM, 10:30PM)
     Route: 048
     Dates: start: 201707
  3. CARBIDOPA-LEVODOPA ER [Suspect]
     Active Substance: CARBIDOPA\LEVODOPA
     Dosage: IMMEDIATE RELEASE, UNK
     Route: 065
     Dates: start: 2018, end: 2018
  4. SINEMET [Suspect]
     Active Substance: CARBIDOPA\LEVODOPA
     Indication: PARKINSON^S DISEASE
     Dosage: UNK
     Route: 065
     Dates: start: 2018
  5. REQUIP [Concomitant]
     Active Substance: ROPINIROLE HYDROCHLORIDE
     Indication: PARKINSON^S DISEASE
     Dosage: 3 MG, TWO CAPSULES, THREE TIMES A DAY (07:30 AM, 01:30 PM, AND 07:30PM)
     Route: 048
     Dates: start: 2000

REACTIONS (8)
  - Labelled drug-food interaction medication error [Unknown]
  - Therapeutic response shortened [Not Recovered/Not Resolved]
  - Dyspnoea [Not Recovered/Not Resolved]
  - Weight decreased [Recovered/Resolved]
  - Gait disturbance [Unknown]
  - Fatigue [Unknown]
  - Malaise [Not Recovered/Not Resolved]
  - Prescribed overdose [Unknown]
